FAERS Safety Report 4488684-3 (Version None)
Quarter: 2004Q4

REPORT INFORMATION
  Report Type: 
  Country: None (occurrence: None)
  Receive Date: 20041025
  Receipt Date: 20041006
  Transmission Date: 20050328
  Serious: Yes (Hospitalization)
  Sender: FDA-Public Use
  Company Number: 203964

PATIENT
  Age: 60 Year
  Sex: Female
  Weight: 51 kg

DRUGS (16)
  1. HERCEPTIN [Suspect]
     Indication: BREAST CANCER METASTATIC
     Dosage: SEE IMAGE
     Route: 042
     Dates: start: 20030619, end: 20030619
  2. HERCEPTIN [Suspect]
     Indication: BREAST CANCER METASTATIC
     Dosage: SEE IMAGE
     Route: 042
     Dates: start: 20030625
  3. NAVELBINE [Suspect]
     Indication: BREAST CANCER METASTATIC
     Dosage: SEE IMAGE
     Route: 042
     Dates: start: 20030618, end: 20030716
  4. NAVELBINE [Suspect]
     Indication: BREAST CANCER METASTATIC
     Dosage: SEE IMAGE
     Route: 042
     Dates: start: 20030805, end: 20040121
  5. LOXONIN (LOXOPROFEN SODIUM) [Concomitant]
  6. LENDORM [Concomitant]
  7. SELBEX (TEPRENONE) [Concomitant]
  8. CYTOTEC [Concomitant]
  9. MOBIC [Concomitant]
  10. CAFFEINE (CAFFEINE) [Concomitant]
  11. ACETAMINOPHEN [Concomitant]
  12. PROMETHEZINE HCL [Concomitant]
  13. METHYLENE DISALICYLATE [Concomitant]
  14. SALICYLAMIDE (SALICYLAMIDE) [Concomitant]
  15. MEDICON (DEXTROMETHORPHAN HYDROBROMIDE) [Concomitant]
  16. LEVOFLOXACIN [Concomitant]

REACTIONS (26)
  - ABDOMINAL DISTENSION [None]
  - ALANINE AMINOTRANSFERASE INCREASED [None]
  - ALOPECIA [None]
  - ANOREXIA [None]
  - ASPARTATE AMINOTRANSFERASE INCREASED [None]
  - BLOOD ALKALINE PHOSPHATASE INCREASED [None]
  - BLOOD PRESSURE SYSTOLIC INCREASED [None]
  - CHILLS [None]
  - COUGH [None]
  - DIARRHOEA [None]
  - ELECTROCARDIOGRAM ST-T SEGMENT ABNORMAL [None]
  - FATIGUE [None]
  - GASTRITIS [None]
  - GINGIVITIS [None]
  - HAEMOGLOBIN DECREASED [None]
  - HEADACHE [None]
  - HYPERSENSITIVITY [None]
  - HYPERTENSION [None]
  - NASOPHARYNGITIS [None]
  - NAUSEA [None]
  - NEUTROPHIL COUNT DECREASED [None]
  - RASH [None]
  - RED BLOOD CELL COUNT DECREASED [None]
  - VERTIGO POSITIONAL [None]
  - VOMITING [None]
  - WHITE BLOOD CELL COUNT DECREASED [None]
